FAERS Safety Report 5605325-X (Version None)
Quarter: 2008Q1

REPORT INFORMATION
  Report Type: 
  Country: None (occurrence: None)
  Receive Date: 20080129
  Receipt Date: 20080116
  Transmission Date: 20080703
  Serious: Yes (Life-Threatening, Hospitalization)
  Sender: FDA-Public Use
  Company Number: GB-PFIZER INC-2008005639

PATIENT
  Age: 68 Year
  Sex: Male
  Weight: 90 kg

DRUGS (22)
  1. LINEZOLID [Suspect]
     Indication: ENTEROCOCCAL INFECTION
     Route: 042
     Dates: start: 20071218, end: 20071231
  2. ACTRAPID [Concomitant]
     Route: 058
  3. ALLOPURINOL [Concomitant]
     Dosage: DAILY DOSE:300MG
  4. CASPOFUNGIN [Concomitant]
     Dosage: DAILY DOSE:70MG
     Route: 042
  5. FILGRASTIM [Concomitant]
     Dosage: DAILY DOSE:300MCG
     Route: 058
  6. FLUCLOXACILLIN [Concomitant]
     Route: 042
  7. FLUCONAZOLE [Concomitant]
     Dosage: DAILY DOSE:400MG
  8. GENTAMICIN [Concomitant]
     Route: 042
  9. GLICLAZIDE [Concomitant]
  10. IMIPENEM [Concomitant]
     Route: 042
  11. METFORMIN HCL [Concomitant]
  12. METRONIDAZOLE [Concomitant]
  13. OMEPRAZOLE [Concomitant]
     Dosage: DAILY DOSE:20MG
  14. ORAMORPH SR [Concomitant]
     Dosage: DAILY DOSE:10MG
  15. PABRINEX [Concomitant]
  16. PARACETAMOL [Concomitant]
     Dosage: DAILY DOSE:1GRAM
  17. ALBUTEROL [Concomitant]
  18. SANDOCAL [Concomitant]
  19. SANDO K [Concomitant]
  20. SODIUM CHLORIDE INJ [Concomitant]
  21. TAZOCIN [Concomitant]
     Route: 042
  22. VANCOMYCIN [Concomitant]
     Route: 042

REACTIONS (4)
  - HEART RATE INCREASED [None]
  - HYPERHIDROSIS [None]
  - SUPRAVENTRICULAR TACHYCARDIA [None]
  - VOMITING [None]
